FAERS Safety Report 25385257 (Version 2)
Quarter: 2025Q3

REPORT INFORMATION
  Report Type: Spontaneous
  Country: GB (occurrence: GB)
  Receive Date: 20250602
  Receipt Date: 20250826
  Transmission Date: 20251021
  Serious: Yes (Disabling, Other)
  Sender: TEVA
  Company Number: None

PATIENT
  Age: 79 Year
  Sex: Male
  Weight: 98 kg

DRUGS (2)
  1. HALOPERIDOL [Suspect]
     Active Substance: HALOPERIDOL
     Indication: Sedation
     Route: 065
  2. HALOPERIDOL [Suspect]
     Active Substance: HALOPERIDOL
     Indication: Sedation
     Route: 065

REACTIONS (11)
  - Cognitive disorder [Recovering/Resolving]
  - Movement disorder [Unknown]
  - Medication error [Unknown]
  - Gait disturbance [Unknown]
  - Restlessness [Unknown]
  - Eye movement disorder [Unknown]
  - Feeling cold [Unknown]
  - Irritability [Unknown]
  - Aggression [Unknown]
  - Decreased appetite [Unknown]
  - Insomnia [Unknown]

NARRATIVE: CASE EVENT DATE: 20250515
